FAERS Safety Report 13848800 (Version 1)
Quarter: 2017Q3

REPORT INFORMATION
  Report Type: Spontaneous
  Country: FR (occurrence: FR)
  Receive Date: 20170809
  Receipt Date: 20170809
  Transmission Date: 20171127
  Serious: Yes (Other)
  Sender: FDA-Public Use
  Company Number: FR-MERCK KGAA-2024370

PATIENT
  Sex: Female

DRUGS (1)
  1. NOVOTHYROX [Suspect]
     Active Substance: LEVOTHYROXINE SODIUM
     Indication: AUTOIMMUNE THYROIDITIS
     Dates: start: 201704

REACTIONS (6)
  - Mucosal dryness [Unknown]
  - Nausea [Unknown]
  - Hyperchlorhydria [Unknown]
  - Hypothyroidism [Unknown]
  - Vertigo [Unknown]
  - Hyperthyroidism [Unknown]
